FAERS Safety Report 25529453 (Version 1)
Quarter: 2025Q3

REPORT INFORMATION
  Report Type: Spontaneous
  Country: US (occurrence: US)
  Receive Date: 20250708
  Receipt Date: 20250708
  Transmission Date: 20251021
  Serious: No
  Sender: CALLIDITAS THERAPEUTICS AB
  Company Number: US-Calliditas-2025CAL00919

PATIENT
  Age: 43 Year
  Sex: Female

DRUGS (7)
  1. TARPEYO [Suspect]
     Active Substance: BUDESONIDE
     Indication: IgA nephropathy
     Route: 048
     Dates: start: 20250201, end: 20250403
  2. ELIQUIS [Concomitant]
     Active Substance: APIXABAN
  3. VITAMIN D3 [Concomitant]
     Active Substance: CHOLECALCIFEROL
  4. LASIX [Concomitant]
     Active Substance: FUROSEMIDE
  5. LISINOPRIL [Concomitant]
     Active Substance: LISINOPRIL
  6. MIDODRINE [Concomitant]
     Active Substance: MIDODRINE
  7. ALDACTONE [Concomitant]
     Active Substance: SPIRONOLACTONE

REACTIONS (2)
  - Dyspnoea [Unknown]
  - Swelling [Unknown]
